FAERS Safety Report 5364816-X (Version None)
Quarter: 2007Q2

REPORT INFORMATION
  Report Type: 
  Country: None (occurrence: None)
  Receive Date: 20070621
  Receipt Date: 20070612
  Transmission Date: 20071010
  Serious: Yes (Other)
  Sender: FDA-Public Use
  Company Number: PHBS2007BR09888

PATIENT
  Age: 30 Year
  Sex: Female

DRUGS (2)
  1. PAMIDRONATE DISODIUM [Suspect]
     Indication: BLOOD ALKALINE PHOSPHATASE INCREASED
     Dosage: 3 CONS DAYS/EVERY 4 MONTHS
  2. CALCIUM CHLORIDE [Concomitant]
     Dosage: 1000 MG, UNK

REACTIONS (2)
  - DRUG EXPOSURE BEFORE PREGNANCY [None]
  - PREMATURE LABOUR [None]
